FAERS Safety Report 4702748-8 (Version None)
Quarter: 2005Q2

REPORT INFORMATION
  Report Type: 
  Country: None (occurrence: None)
  Receive Date: 20050628
  Receipt Date: 20050628
  Transmission Date: 20051028
  Serious: Yes (Life-Threatening)
  Sender: FDA-Public Use
  Company Number: None

PATIENT
  Age: 44 Year
  Sex: Male
  Weight: 68 kg

DRUGS (1)
  1. OCTREDTIDE 1000 MG/ML 5 ML [Suspect]
     Indication: GASTROINTESTINAL HAEMORRHAGE
     Dosage: 100 MCG/HR IV CONT
     Route: 042
     Dates: start: 20050604

REACTIONS (5)
  - ASTHENIA [None]
  - DRUG HYPERSENSITIVITY [None]
  - FAECES DISCOLOURED [None]
  - GASTROINTESTINAL HAEMORRHAGE [None]
  - THERAPEUTIC RESPONSE UNEXPECTED WITH DRUG SUBSTITUTION [None]
